FAERS Safety Report 11605299 (Version 1)
Quarter: 2015Q4

REPORT INFORMATION
  Report Type: Spontaneous
  Country: US (occurrence: None)
  Receive Date: 20151006
  Receipt Date: 20151006
  Transmission Date: 20160304
  Serious: No
  Sender: FDA-Public Use
  Company Number: None

PATIENT
  Age: 29 Year
  Sex: Female
  Weight: 58.97 kg

DRUGS (1)
  1. PARAGARD T 380A [Suspect]
     Active Substance: COPPER
     Indication: CONTRACEPTION
     Dosage: 1 DEVICE, 10 YEARS, INSERTED INTO UTERUS
     Dates: start: 20130201, end: 20150330

REACTIONS (7)
  - Contusion [None]
  - Abdominal pain [None]
  - Back pain [None]
  - Dyspareunia [None]
  - Arthralgia [None]
  - Pain [None]
  - Activities of daily living impaired [None]

NARRATIVE: CASE EVENT DATE: 20150330
